FAERS Safety Report 11081642 (Version 1)
Quarter: 2015Q2

REPORT INFORMATION
  Report Type: Spontaneous
  Country: GB (occurrence: GB)
  Receive Date: 20150501
  Receipt Date: 20150501
  Transmission Date: 20150821
  Serious: Yes (Life-Threatening)
  Sender: FDA-Public Use
  Company Number: GB-BAUSCH-BL-2015-011948

PATIENT
  Age: 8 Month
  Sex: Female
  Weight: 2.5 kg

DRUGS (4)
  1. DIURETIC [Concomitant]
     Active Substance: UNSPECIFIED INGREDIENT
     Indication: PRODUCT USED FOR UNKNOWN INDICATION
  2. VITAMINS NOS [Concomitant]
     Active Substance: VITAMINS
     Indication: PRODUCT USED FOR UNKNOWN INDICATION
  3. SALT [Concomitant]
     Active Substance: SODIUM CHLORIDE
     Indication: PRODUCT USED FOR UNKNOWN INDICATION
  4. MINIMS CYCLOPENTOLATE [Suspect]
     Active Substance: CYCLOPENTOLATE HYDROCHLORIDE
     Indication: RETINOPATHY OF PREMATURITY
     Route: 047
     Dates: start: 20150311, end: 20150311

REACTIONS (11)
  - Unresponsive to stimuli [Recovered/Resolved]
  - Bradycardia [Recovered/Resolved]
  - Oxygen saturation decreased [Recovered/Resolved]
  - Somnolence [Recovered/Resolved]
  - Dry mouth [Recovered/Resolved]
  - Respiratory disorder [Recovered/Resolved]
  - Anaemia [None]
  - Cyanosis [Recovered/Resolved]
  - Hypotonia [Recovered/Resolved]
  - Pallor [Recovered/Resolved]
  - Apnoeic attack [Recovered/Resolved]

NARRATIVE: CASE EVENT DATE: 20150311
